FAERS Safety Report 9032157 (Version 7)
Quarter: 2013Q2

REPORT INFORMATION
  Report Type: Spontaneous
  Country: US (occurrence: US)
  Receive Date: 20130122
  Receipt Date: 20130513
  Transmission Date: 20140414
  Serious: No
  Sender: FDA-Public Use
  Company Number: US-VERTEX PHARMACEUTICALS INC.-2013-000845

PATIENT
  Age: 50 Year
  Sex: Male
  Weight: 79 kg

DRUGS (7)
  1. INCIVEK [Suspect]
     Indication: HEPATITIS C
     Dosage: 750 MG, TID
     Route: 048
     Dates: start: 20130116, end: 201303
  2. INCIVEK [Suspect]
     Dosage: 750 MG, TID
     Route: 048
     Dates: start: 201303, end: 201303
  3. RIBAVIRIN [Suspect]
     Indication: HEPATITIS C
     Dosage: 400MG AM, 600MG PM, QD
     Route: 048
     Dates: start: 20130116, end: 201303
  4. RIBAVIRIN [Suspect]
     Dosage: 400MG AM, 600MG PM
     Route: 048
     Dates: start: 201303, end: 201303
  5. PEGASYS [Suspect]
     Indication: HEPATITIS C
     Dosage: 180 ?G, QW
     Route: 058
     Dates: start: 20130116, end: 201303
  6. PEGASYS [Suspect]
     Dosage: 180 ?G, QW
     Route: 058
     Dates: start: 201303, end: 201303
  7. SIMVASTATIN [Concomitant]
     Indication: BLOOD CHOLESTEROL
     Dosage: UNK, QD
     Route: 048

REACTIONS (12)
  - Drug dose omission [Recovered/Resolved]
  - Dizziness [Not Recovered/Not Resolved]
  - Headache [Recovered/Resolved]
  - Vision blurred [Not Recovered/Not Resolved]
  - Hypoaesthesia [Recovered/Resolved]
  - Constipation [Recovered/Resolved]
  - Fatigue [Not Recovered/Not Resolved]
  - Anorectal discomfort [Recovered/Resolved]
  - Anal pruritus [Recovered/Resolved]
  - Rash papular [Not Recovered/Not Resolved]
  - Nausea [Unknown]
  - Diarrhoea [Recovered/Resolved]
